FAERS Safety Report 6664808-4 (Version None)
Quarter: 2010Q1

REPORT INFORMATION
  Report Type: 
  Country: None (occurrence: None)
  Receive Date: 20100330
  Receipt Date: 20100323
  Transmission Date: 20100710
  Serious: Yes (Hospitalization)
  Sender: FDA-Public Use
  Company Number: 230384J10BRA

PATIENT
  Age: 46 Year
  Sex: Female

DRUGS (5)
  1. REBIF [Suspect]
     Indication: RELAPSING-REMITTING MULTIPLE SCLEROSIS
     Dosage: 44 MCG, 3 IN 1 WEEKS; 44 MCG, 3 IN 1 WEEKS
     Dates: start: 20050615, end: 20100217
  2. REBIF [Suspect]
     Indication: RELAPSING-REMITTING MULTIPLE SCLEROSIS
     Dosage: 44 MCG, 3 IN 1 WEEKS; 44 MCG, 3 IN 1 WEEKS
     Dates: start: 20100201
  3. TRIPTANOL (AMITRIPTYLINE) (AMITRIPTYLINE) [Concomitant]
  4. MANTIDAN (AMANTADINE HYDROCHLORIDE) [Concomitant]
  5. BACLOFEN [Concomitant]

REACTIONS (4)
  - FALLOPIAN TUBE CYST [None]
  - HYPERKERATOSIS [None]
  - PURULENCE [None]
  - PYREXIA [None]
